FAERS Safety Report 7936520-2 (Version None)
Quarter: 2011Q4

REPORT INFORMATION
  Report Type: 
  Country: None (occurrence: None)
  Receive Date: 20111123
  Receipt Date: 20110901
  Transmission Date: 20120403
  Serious: No
  Sender: FDA-Public Use
  Company Number: US-BAYER-2011-087761

PATIENT
  Sex: Female

DRUGS (4)
  1. IBUPROFEN [Concomitant]
  2. ALEVE (CAPLET) [Suspect]
     Indication: PAIN
  3. ASPIRIN [Suspect]
     Indication: PAIN
  4. ACETAMINOPHEN [Concomitant]

REACTIONS (1)
  - PAIN [None]
